FAERS Safety Report 14296701 (Version 1)
Quarter: 2017Q4

REPORT INFORMATION
  Report Type: Spontaneous
  Country: US (occurrence: US)
  Receive Date: 20171218
  Receipt Date: 20171218
  Transmission Date: 20180321
  Serious: Yes (Hospitalization)
  Sender: FDA-Public Use
  Company Number: US-PFIZER INC-2017534694

PATIENT
  Age: 28 Year
  Sex: Male
  Weight: 92.99 kg

DRUGS (1)
  1. ATROPINE SULFATE/DIPHENOXYLATE HYDROCHLORIDE [Suspect]
     Active Substance: ATROPINE SULFATE\DIPHENOXYLATE HYDROCHLORIDE
     Indication: FREQUENT BOWEL MOVEMENTS
     Dosage: TWO TABLETS EVERY EIGHT HOURS AS NEEDED
     Route: 048

REACTIONS (3)
  - Abdominal abscess [Recovered/Resolved]
  - Respiratory disorder [Unknown]
  - Product use issue [Unknown]

NARRATIVE: CASE EVENT DATE: 201708
